FAERS Safety Report 4748446-6 (Version None)
Quarter: 2005Q3

REPORT INFORMATION
  Report Type: 
  Country: None (occurrence: None)
  Receive Date: 20050817
  Receipt Date: 20050425
  Transmission Date: 20060218
  Serious: Yes (Hospitalization, Other)
  Sender: FDA-Public Use
  Company Number: PHEH2005US04444

PATIENT
  Age: 9 Year
  Sex: Male

DRUGS (9)
  1. GLEEVEC [Suspect]
     Indication: ACUTE LYMPHOCYTIC LEUKAEMIA
     Dosage: 400 MG, QD, ORAL
     Route: 048
     Dates: start: 20041231, end: 20050116
  2. GLEEVEC [Suspect]
     Indication: ACUTE LYMPHOCYTIC LEUKAEMIA
     Dosage: 400 MG, QD, ORAL
     Route: 048
     Dates: start: 20050221, end: 20050303
  3. GLEEVEC [Suspect]
     Indication: ACUTE LYMPHOCYTIC LEUKAEMIA
     Dosage: 400 MG, QD, ORAL
     Route: 048
     Dates: start: 20050307, end: 20050330
  4. DEXAMETHASONE [Concomitant]
  5. METHOTREXATE [Concomitant]
  6. VINCRISTINE [Concomitant]
  7. PENTAMIDINE(PENTAMIDINE) [Concomitant]
  8. MERCAPTOPURINE [Concomitant]
  9. ANTIBIOTICS\\\\9NO INGREDIENTS/SUBSTANCES) [Concomitant]

REACTIONS (5)
  - DERMATITIS EXFOLIATIVE [None]
  - NEUTROPENIA [None]
  - PLATELET COUNT DECREASED [None]
  - PYREXIA [None]
  - RED BLOOD CELL COUNT DECREASED [None]
